FAERS Safety Report 8077408-9 (Version None)
Quarter: 2012Q1

REPORT INFORMATION
  Report Type: 
  Country: None (occurrence: None)
  Receive Date: 20120127
  Receipt Date: 20120120
  Transmission Date: 20120608
  Serious: Yes (Death, Hospitalization)
  Sender: FDA-Public Use
  Company Number: PHHO2011US020400

PATIENT
  Age: 63 Year
  Sex: Male
  Weight: 56.2 kg

DRUGS (9)
  1. CORTAB [Concomitant]
  2. FOLFOX-6 [Concomitant]
     Indication: COLORECTAL CANCER
     Dosage: EVERY TWO WEEKS
  3. MULTI-VITAMINS [Concomitant]
  4. SENNA [Concomitant]
  5. OXYCONTIN [Concomitant]
     Dosage: UNK
  6. AVASTIN [Concomitant]
     Indication: COLORECTAL CANCER
     Dosage: EVERY TWO WEEKS
  7. AFINITOR [Suspect]
     Indication: COLORECTAL CANCER
     Dosage: 10 MG, QD
     Dates: start: 20110816, end: 20111123
  8. ENOXAPARIN [Concomitant]
  9. ONDANSETRON HCL [Concomitant]

REACTIONS (1)
  - SMALL INTESTINAL OBSTRUCTION [None]
